FAERS Safety Report 14964688 (Version 2)
Quarter: 2019Q2

REPORT INFORMATION
  Report Type: Spontaneous
  Country: DE (occurrence: DE)
  Receive Date: 20180601
  Receipt Date: 20190405
  Transmission Date: 20190711
  Serious: Yes (Other)
  Sender: FDA-Public Use
  Company Number: DE-TEVA-2018-DE-898147

PATIENT
  Age: 69 Year
  Sex: Male
  Weight: 75 kg

DRUGS (31)
  1. ALLOPURINOL. [Concomitant]
     Active Substance: ALLOPURINOL
     Dosage: 100 MILLIGRAM DAILY;
     Route: 065
  2. ALLOPURINOL. [Concomitant]
     Active Substance: ALLOPURINOL
     Dosage: 0.5 DF, UNK
     Route: 065
  3. NEUPRO [Concomitant]
     Active Substance: ROTIGOTINE
     Indication: PRODUCT USED FOR UNKNOWN INDICATION
     Dosage: 2 MILLIGRAM DAILY;
  4. METOPROLOL. [Concomitant]
     Active Substance: METOPROLOL
     Indication: HYPERTENSION
     Dosage: 1 DOSAGE FORMS DAILY;
     Route: 065
     Dates: start: 2000
  5. LOSARTAN. [Concomitant]
     Active Substance: LOSARTAN
     Indication: PRODUCT USED FOR UNKNOWN INDICATION
     Dosage: 12.5 MILLIGRAM DAILY;
     Route: 048
     Dates: start: 2010
  6. EXJADE [Suspect]
     Active Substance: DEFERASIROX
     Indication: HAEMOSIDEROSIS
     Dosage: 500 MILLIGRAM DAILY;
     Route: 048
     Dates: start: 201312
  7. EXJADE [Suspect]
     Active Substance: DEFERASIROX
     Dosage: 500 MILLIGRAM DAILY; DAILY DOSE: 1000 MG MILLIGRAM(S) EVERY DAY
     Route: 048
     Dates: start: 201401
  8. MARCUMAR [Suspect]
     Active Substance: PHENPROCOUMON
     Indication: PULMONARY EMBOLISM
     Dosage: 3 MG,ACCORDING TO INR, TARGET INR: 1,5-2,0, (1/2-3/4 OF TABLET)
     Route: 048
     Dates: start: 2010
  9. HCT [Concomitant]
     Active Substance: HYDROCHLOROTHIAZIDE
     Dosage: 12.5 MILLIGRAM DAILY; 12.5 MG, QD (AS NECESSARY)
     Route: 065
  10. HCT BETA [Concomitant]
     Active Substance: HYDROCHLOROTHIAZIDE
     Indication: HYPERTENSION
     Route: 065
     Dates: start: 2002
  11. EUPHORBIUM COMP [Concomitant]
     Indication: PRODUCT USED FOR UNKNOWN INDICATION
     Dosage: A FEW TIMES A DAY
     Route: 065
  12. EXJADE [Suspect]
     Active Substance: DEFERASIROX
     Dosage: 2000 MILLIGRAM DAILY; 2000 MG, DAILY (1000 MG IN THE MORNING AND 1000 MG IN THE EVENING)
     Route: 048
  13. MARCUMAR [Suspect]
     Active Substance: PHENPROCOUMON
     Indication: DEEP VEIN THROMBOSIS
     Dosage: 1 DOSAGE FORMS DAILY; 1 TABLET PER DAY
     Route: 048
     Dates: start: 2006
  14. HCT BETA [Concomitant]
     Active Substance: HYDROCHLOROTHIAZIDE
     Indication: HYPERTENSION
     Dosage: 12.5 MG, PRN
     Route: 065
     Dates: start: 2002
  15. TORASEMIDE [Concomitant]
     Active Substance: TORSEMIDE
     Indication: PRODUCT USED FOR UNKNOWN INDICATION
     Dosage: 0.5 DF, BID (10 MG)
     Route: 065
  16. EXJADE [Suspect]
     Active Substance: DEFERASIROX
     Dosage: 1500 MILLIGRAM DAILY; DAILY DOSE: 1500 MG MILLIGRAM(S) EVERY DAY
     Route: 048
     Dates: start: 20131201
  17. JAKAVI [Suspect]
     Active Substance: RUXOLITINIB
     Indication: MYELOFIBROSIS
     Dosage: 5 MILLIGRAM DAILY;
     Route: 048
     Dates: start: 201312
  18. EXJADE [Suspect]
     Active Substance: DEFERASIROX
     Indication: MYELODYSPLASTIC SYNDROME
     Dosage: 750 MILLIGRAM DAILY; DAILY DOSE: 750 MG MILLIGRAM(S) EVERY DAY
     Route: 048
     Dates: start: 2012
  19. VALSARTAN COMP [Suspect]
     Active Substance: HYDROCHLOROTHIAZIDE\VALSARTAN
     Indication: PRODUCT USED FOR UNKNOWN INDICATION
     Dosage: .5 DOSAGE FORMS DAILY; 0.5 DF, QD (HALF TABLET DAILY)
     Route: 065
  20. EXJADE [Suspect]
     Active Substance: DEFERASIROX
     Dosage: 250 MILLIGRAM DAILY; DAILY DOSE: 500 MG MILLIGRAM(S) EVERY DAY
     Route: 048
     Dates: start: 201308
  21. MARCUMAR [Suspect]
     Active Substance: PHENPROCOUMON
     Indication: ARRHYTHMIA
     Dosage: 1 DOSAGE FORMS DAILY; 1 TABLET PER DAY
     Route: 048
     Dates: start: 2004
  22. HYLO-COMOD [Concomitant]
     Active Substance: HYALURONATE SODIUM
     Indication: PRODUCT USED FOR UNKNOWN INDICATION
     Dosage: UNK UKN, A FEW TIMES A DAY
     Route: 065
  23. VALSACOR [Concomitant]
     Active Substance: VALSARTAN
     Indication: HYPERTENSION
     Dosage: 0.5 DF, IN EVENING
     Route: 065
     Dates: start: 2005
  24. METOPROLOL. [Concomitant]
     Active Substance: METOPROLOL
     Indication: HYPERTENSION
     Dosage: 47.5 MG (1 TABLET)
     Route: 065
     Dates: start: 2000
  25. ALLOPURINOL. [Concomitant]
     Active Substance: ALLOPURINOL
     Indication: PRODUCT USED FOR UNKNOWN INDICATION
     Dosage: 1 DOSAGE FORMS DAILY;
     Route: 065
  26. ERYTHROCYTES [Concomitant]
     Active Substance: HUMAN RED BLOOD CELL
     Indication: PRODUCT USED FOR UNKNOWN INDICATION
     Dosage: APPROX. 2 EC^S EVERY 10 DAYS
     Route: 065
     Dates: start: 201301
  27. LOSARTAN CT [Concomitant]
     Indication: HYPERTENSION
     Dosage: 50 MG, 01 TABLET
     Route: 065
  28. JAKAVI [Suspect]
     Active Substance: RUXOLITINIB
     Indication: MYELOFIBROSIS
     Dosage: 5 MILLIGRAM DAILY;
     Route: 048
     Dates: start: 20131015
  29. HCT [Concomitant]
     Active Substance: HYDROCHLOROTHIAZIDE
     Indication: HYPERTENSION
     Dosage: 50 MILLIGRAM DAILY;
     Route: 048
     Dates: start: 2010
  30. ERYTHROZYTEN [Concomitant]
     Dosage: 2 DF, UNK (FRIDAY)
     Route: 065
  31. BEPANTHEN [Concomitant]
     Indication: PRODUCT USED FOR UNKNOWN INDICATION
     Dosage: UNK, SEVERAL TIMES DAILY
     Route: 065

REACTIONS (10)
  - Restless legs syndrome [Not Recovered/Not Resolved]
  - White blood cell count decreased [Unknown]
  - Weight increased [Unknown]
  - Pericardial effusion [Recovered/Resolved]
  - Abscess [Not Recovered/Not Resolved]
  - Dyspnoea [Unknown]
  - Blood creatinine increased [Unknown]
  - Pleural effusion [Recovered/Resolved]
  - Thrombocytopenia [Not Recovered/Not Resolved]
  - Platelet count decreased [Unknown]

NARRATIVE: CASE EVENT DATE: 2013
